FAERS Safety Report 4751509-2 (Version None)
Quarter: 2005Q3

REPORT INFORMATION
  Report Type: 
  Country: None (occurrence: None)
  Receive Date: 20050824
  Receipt Date: 20050810
  Transmission Date: 20060218
  Serious: Yes (Other)
  Sender: FDA-Public Use
  Company Number: BR-GLAXOSMITHKLINE-A0570488A

PATIENT
  Age: 23 Year
  Sex: Female
  Weight: 59 kg

DRUGS (1)
  1. NIQUITIN 14MG [Suspect]
     Route: 062
     Dates: start: 20050809, end: 20050810

REACTIONS (5)
  - ABNORMAL DREAMS [None]
  - INSOMNIA [None]
  - INTENTIONAL MISUSE [None]
  - OCULAR ICTERUS [None]
  - VOMITING [None]
